FAERS Safety Report 4998982-2 (Version None)
Quarter: 2006Q2

REPORT INFORMATION
  Report Type: 
  Country: None (occurrence: None)
  Receive Date: 20060510
  Receipt Date: 20060217
  Transmission Date: 20061013
  Serious: Yes (Hospitalization, Disabling)
  Sender: FDA-Public Use
  Company Number: US-MERCK-0602USA04800

PATIENT
  Age: 56 Year
  Sex: Male
  Weight: 91 kg

DRUGS (10)
  1. VIOXX [Suspect]
     Indication: BACK PAIN
     Route: 048
     Dates: start: 20001130, end: 20001207
  2. VIOXX [Suspect]
     Route: 048
     Dates: start: 20020529, end: 20030118
  3. VIOXX [Suspect]
     Route: 048
     Dates: start: 20031003, end: 20040906
  4. VIOXX [Suspect]
     Indication: OSTEOARTHRITIS
     Route: 048
     Dates: start: 20001130, end: 20001207
  5. VIOXX [Suspect]
     Route: 048
     Dates: start: 20020529, end: 20030118
  6. VIOXX [Suspect]
     Route: 048
     Dates: start: 20031003, end: 20040906
  7. ZOCOR [Concomitant]
     Route: 065
  8. HYDRODIURIL [Concomitant]
     Route: 065
  9. GLUCOPHAGE [Concomitant]
     Route: 065
  10. GLUCOTROL XL [Concomitant]
     Route: 065

REACTIONS (7)
  - CARDIAC FAILURE CONGESTIVE [None]
  - CHEST PAIN [None]
  - CORONARY ARTERY DISEASE [None]
  - DEPRESSION [None]
  - DIABETES MELLITUS [None]
  - DYSPNOEA [None]
  - MYOCARDIAL INFARCTION [None]
